FAERS Safety Report 15537227 (Version 1)
Quarter: 2018Q4

REPORT INFORMATION
  Report Type: Spontaneous
  Country: CZ (occurrence: CZ)
  Receive Date: 20181022
  Receipt Date: 20181022
  Transmission Date: 20190205
  Serious: Yes (Death, Hospitalization)
  Sender: FDA-Public Use
  Company Number: CZ-PFIZER INC-2018426713

PATIENT
  Age: 67 Year
  Sex: Male

DRUGS (18)
  1. CARVEDILOL. [Suspect]
     Active Substance: CARVEDILOL
     Indication: HYPERVOLAEMIA
  2. FUROSEMIDE. [Suspect]
     Active Substance: FUROSEMIDE
     Indication: CARDIAC FAILURE CHRONIC
     Dosage: 250 MG, 2X/DAY (1-1-0)
  3. HYDROCHLOROTHIAZID [Suspect]
     Active Substance: HYDROCHLOROTHIAZIDE
     Indication: CARDIAC FAILURE
     Dosage: UNK, (TARGET DOSE: 12.5-100 MG)
  4. AMILORIDE [Suspect]
     Active Substance: AMILORIDE
     Indication: CARDIAC FAILURE CHRONIC
     Dosage: UNK, (LOADING DOSE:2.5, 5 AND TARGET DOSE: 5-10 AND 10-20)
  5. AMILORIDE [Suspect]
     Active Substance: AMILORIDE
     Indication: CARDIAC FAILURE
  6. AMILORIDE [Suspect]
     Active Substance: AMILORIDE
     Indication: HYPERVOLAEMIA
  7. INDAPAMID [Suspect]
     Active Substance: INDAPAMIDE
     Indication: CARDIAC FAILURE CHRONIC
     Dosage: UNK (LOADING DOSE: 2.5 AND TARGET DOSE: 2.5-5)
  8. INDAPAMID [Suspect]
     Active Substance: INDAPAMIDE
     Indication: CARDIAC FAILURE
  9. FUROSEMIDE. [Suspect]
     Active Substance: FUROSEMIDE
     Indication: CARDIAC FAILURE
     Dosage: UNK, (LOADING DOSE: 20-40 MG AND TARGET DOSE: 40-240 MG))
  10. HYDROCHLOROTHIAZID [Suspect]
     Active Substance: HYDROCHLOROTHIAZIDE
     Indication: CARDIAC FAILURE CHRONIC
     Dosage: 25 MG, 1X/DAY (1-0-0) (LOADING DOSE)
  11. EPLERENONE. [Suspect]
     Active Substance: EPLERENONE
     Indication: CARDIAC FAILURE CHRONIC
  12. CARVEDILOL. [Suspect]
     Active Substance: CARVEDILOL
     Indication: CARDIAC FAILURE CHRONIC
     Dosage: 12.5 MG, 2X/DAY (1-0-1)
  13. CARVEDILOL. [Suspect]
     Active Substance: CARVEDILOL
     Indication: CARDIAC FAILURE
  14. FUROSEMIDE. [Suspect]
     Active Substance: FUROSEMIDE
     Indication: HYPERVOLAEMIA
  15. INDAPAMID [Suspect]
     Active Substance: INDAPAMIDE
     Indication: HYPERVOLAEMIA
  16. EPLERENONE. [Suspect]
     Active Substance: EPLERENONE
     Indication: CARDIAC FAILURE
     Dosage: 50 MG, 2X/DAY (2-0-2)
  17. EPLERENONE. [Suspect]
     Active Substance: EPLERENONE
     Indication: HYPERVOLAEMIA
     Dosage: UNK, (LOADING DOSE: 50MG AND TARGET DOSE: 100-200MG)
  18. HYDROCHLOROTHIAZID [Suspect]
     Active Substance: HYDROCHLOROTHIAZIDE
     Indication: HYPERVOLAEMIA

REACTIONS (2)
  - Multiple organ dysfunction syndrome [Fatal]
  - Drug ineffective [Fatal]

NARRATIVE: CASE EVENT DATE: 201703
